FAERS Safety Report 6935888-3 (Version None)
Quarter: 2010Q3

REPORT INFORMATION
  Report Type: 
  Country: None (occurrence: None)
  Receive Date: 20100823
  Receipt Date: 20100813
  Transmission Date: 20110219
  Serious: Yes (Hospitalization, Other)
  Sender: FDA-Public Use
  Company Number: HU-ASTRAZENECA-2010SE38234

PATIENT
  Age: 70 Year
  Sex: Male
  Weight: 80 kg

DRUGS (11)
  1. CRESTOR [Suspect]
     Route: 048
  2. RIVAROXABAN BLINDED [Suspect]
     Indication: ACUTE CORONARY SYNDROME
     Dosage: DAILY
     Route: 048
     Dates: start: 20100622, end: 20100622
  3. RIVAROXABAN BLINDED [Suspect]
     Dosage: TWO TIMES A DAY
     Route: 048
     Dates: start: 20100623
  4. ASPIRIN [Concomitant]
     Indication: ACUTE CORONARY SYNDROME
     Route: 048
  5. CLOPIDOGREL [Concomitant]
     Indication: ACUTE CORONARY SYNDROME
     Route: 048
  6. RAMIPRIL [Concomitant]
  7. NOACID [Concomitant]
  8. PROSTAMOL [Concomitant]
  9. CONCOR [Concomitant]
  10. PEPSIN [Concomitant]
  11. AMLODIPINE [Concomitant]

REACTIONS (5)
  - ACUTE MYOCARDIAL INFARCTION [None]
  - EYE HAEMORRHAGE [None]
  - GAMMA-GLUTAMYLTRANSFERASE INCREASED [None]
  - OCULAR ICTERUS [None]
  - TRANSAMINASES INCREASED [None]
